FAERS Safety Report 7717687-8 (Version None)
Quarter: 2011Q3

REPORT INFORMATION
  Report Type: 
  Country: None (occurrence: None)
  Receive Date: 20110830
  Receipt Date: 20110822
  Transmission Date: 20111222
  Serious: Yes (Other)
  Sender: FDA-Public Use
  Company Number: FR-BRISTOL-MYERS SQUIBB COMPANY-15998735

PATIENT
  Age: 65 Year
  Sex: Female

DRUGS (1)
  1. TAXOL [Suspect]
     Indication: BREAST CANCER
     Dosage: 21APR11,28APR11,05MAY11,19MAY11,26MAY11,03JUN11:140MG
     Route: 042
     Dates: start: 20110414, end: 20110603

REACTIONS (1)
  - INTERSTITIAL LUNG DISEASE [None]
